FAERS Safety Report 10574012 (Version 2)
Quarter: 2014Q4

REPORT INFORMATION
  Report Type: Spontaneous
  Country: JP (occurrence: JP)
  Receive Date: 20141110
  Receipt Date: 20141226
  Transmission Date: 20150529
  Serious: Yes (Hospitalization, Other)
  Sender: FDA-Public Use
  Company Number: CHPA2014JP014896

PATIENT
  Age: 67 Year
  Sex: Male

DRUGS (2)
  1. MAGNESIUM OXIDE. [Suspect]
     Active Substance: MAGNESIUM OXIDE
     Indication: CONSTIPATION
     Dosage: 1 G, QD
     Route: 048
  2. SENNOSIDE A+B [Suspect]
     Active Substance: SENNOSIDES A AND B
     Indication: CONSTIPATION
     Dosage: UNK
     Route: 048

REACTIONS (11)
  - Gastrointestinal necrosis [Recovered/Resolved with Sequelae]
  - Hypermagnesaemia [Recovered/Resolved]
  - Diarrhoea [Unknown]
  - Decreased appetite [Recovered/Resolved]
  - Gastrointestinal oedema [Recovered/Resolved with Sequelae]
  - Shock [Recovered/Resolved]
  - Haematochezia [Unknown]
  - Renal disorder [Unknown]
  - Functional gastrointestinal disorder [Unknown]
  - Altered state of consciousness [Recovered/Resolved]
  - Intestinal dilatation [Recovered/Resolved with Sequelae]
